FAERS Safety Report 22140732 (Version 1)
Quarter: 2023Q1

REPORT INFORMATION
  Report Type: Other
  Country: US (occurrence: None)
  Receive Date: 20230327
  Receipt Date: 20230327
  Transmission Date: 20230417
  Serious: No
  Sender: FDA-Public Use
  Company Number: US-ROCHE-3133809

PATIENT
  Age: 54 Year
  Sex: Female

DRUGS (2)
  1. RITUXAN [Suspect]
     Active Substance: RITUXIMAB
     Indication: Multiple sclerosis
     Dosage: VIAL, INFUSE 1000MG INTRAVENOUSLY EVERY 4 MONTH(S)
     Route: 042
     Dates: start: 20220624
  2. OCREVUS [Suspect]
     Active Substance: OCRELIZUMAB
     Indication: Product used for unknown indication
     Dosage: INFUSE 600MG INTRAVENOUSLY EVERY 5 MONTH(S)
     Route: 042

REACTIONS (2)
  - Off label use [Unknown]
  - COVID-19 [Unknown]
